FAERS Safety Report 14118032 (Version 1)
Quarter: 2017Q4

REPORT INFORMATION
  Report Type: Spontaneous
  Country: US (occurrence: US)
  Receive Date: 20171024
  Receipt Date: 20171024
  Transmission Date: 20180321
  Serious: Yes (Other)
  Sender: FDA-Public Use
  Company Number: US-BEH-2017084526

PATIENT
  Age: 91 Year
  Sex: Female
  Weight: 62.59 kg

DRUGS (29)
  1. OMEPRAZOLE. [Concomitant]
     Active Substance: OMEPRAZOLE
  2. ONDANSETRON [Concomitant]
     Active Substance: ONDANSETRON
  3. OXYCONTIN [Concomitant]
     Active Substance: OXYCODONE HYDROCHLORIDE
  4. BISACODYL. [Concomitant]
     Active Substance: BISACODYL
  5. LUMIGAN [Concomitant]
     Active Substance: BIMATOPROST
  6. HIZENTRA [Suspect]
     Active Substance: HUMAN IMMUNOGLOBULIN G
     Dosage: UNK
     Route: 058
  7. ASPIRIN (E.C.) [Concomitant]
     Active Substance: ASPIRIN
  8. BUDESONIDE. [Concomitant]
     Active Substance: BUDESONIDE
  9. EPIPEN [Concomitant]
     Active Substance: EPINEPHRINE
  10. ZETIA [Concomitant]
     Active Substance: EZETIMIBE
  11. AFRIN [Concomitant]
     Active Substance: OXYMETAZOLINE
  12. PROAIR HFA [Concomitant]
     Active Substance: ALBUTEROL SULFATE
  13. DIPHENHYDRAMINE. [Concomitant]
     Active Substance: DIPHENHYDRAMINE
  14. AQUAPHOR                           /00298701/ [Concomitant]
  15. ZIKS ARTHRITIS PAIN RELIEF [Concomitant]
     Active Substance: CAPSAICIN\MENTHOL\METHYL SALICYLATE
  16. MIRALAX [Concomitant]
     Active Substance: POLYETHYLENE GLYCOL 3350
  17. HIZENTRA [Suspect]
     Active Substance: HUMAN IMMUNOGLOBULIN G
     Indication: IMMUNODEFICIENCY COMMON VARIABLE
     Dosage: 8 G, QW
     Route: 058
     Dates: start: 20101027
  18. HUMALOG [Concomitant]
     Active Substance: INSULIN LISPRO
  19. LORAZEPAM. [Concomitant]
     Active Substance: LORAZEPAM
  20. ZOLPIDEM [Concomitant]
     Active Substance: ZOLPIDEM\ZOLPIDEM TARTRATE
  21. ALBUTEROL                          /00139501/ [Concomitant]
     Active Substance: ALBUTEROL
  22. HUMULIN N [Concomitant]
     Active Substance: INSULIN HUMAN
  23. LIDOCAINE. [Concomitant]
     Active Substance: LIDOCAINE
  24. LOSARTAN. [Concomitant]
     Active Substance: LOSARTAN
  25. CITRACAL + D                       /01438101/ [Concomitant]
  26. AMLODIPINE [Concomitant]
     Active Substance: AMLODIPINE BESYLATE
  27. CLOTRIMAZOLE. [Concomitant]
     Active Substance: CLOTRIMAZOLE
  28. CHLORPHENIRAMINE                   /00072501/ [Concomitant]
     Active Substance: CHLORPHENIRAMINE
  29. VICODIN ES [Concomitant]
     Active Substance: ACETAMINOPHEN\HYDROCODONE BITARTRATE

REACTIONS (1)
  - Respiratory distress [Recovered/Resolved]

NARRATIVE: CASE EVENT DATE: 20171014
